FAERS Safety Report 13436676 (Version 1)
Quarter: 2017Q2

REPORT INFORMATION
  Report Type: Spontaneous
  Country: US (occurrence: US)
  Receive Date: 20170412
  Receipt Date: 20170412
  Transmission Date: 20170830
  Serious: No
  Sender: FDA-Public Use
  Company Number: None

PATIENT
  Age: 65 Year
  Sex: Female

DRUGS (5)
  1. OCALIVA [Suspect]
     Active Substance: OBETICHOLIC ACID
     Indication: BILIARY CIRRHOSIS PRIMARY
     Route: 048
     Dates: start: 20170321
  2. QUESTRAN [Concomitant]
     Active Substance: CHOLESTYRAMINE
  3. INDERAL [Concomitant]
     Active Substance: PROPRANOLOL HYDROCHLORIDE
  4. LOPID [Concomitant]
     Active Substance: GEMFIBROZIL
  5. ACTIGALL [Concomitant]
     Active Substance: URSODIOL

REACTIONS (2)
  - Insomnia [None]
  - Pruritus [None]
